FAERS Safety Report 6968582-3 (Version None)
Quarter: 2010Q3

REPORT INFORMATION
  Report Type: 
  Country: None (occurrence: None)
  Receive Date: 20100907
  Receipt Date: 20100830
  Transmission Date: 20110219
  Serious: Yes (Other)
  Sender: FDA-Public Use
  Company Number: ES-JNJFOC-20100900988

PATIENT
  Sex: Female
  Weight: 71 kg

DRUGS (2)
  1. ORTHO EVRA [Suspect]
     Indication: CONTRACEPTION
     Route: 062
  2. RIVOTRIL [Concomitant]
     Indication: NERVOUSNESS
     Route: 065

REACTIONS (1)
  - DYSPNOEA [None]
